FAERS Safety Report 18673414 (Version 4)
Quarter: 2021Q2

REPORT INFORMATION
  Report Type: Report from Study
  Country: None (occurrence: CA)
  Receive Date: 20201229
  Receipt Date: 20210414
  Transmission Date: 20210717
  Serious: Yes (Other)
  Sender: FDA-Public Use
  Company Number: CA-ABBVIE-20K-028-3708872-00

PATIENT
  Age: 58 Year
  Sex: Female

DRUGS (3)
  1. TRAMADOL. [Suspect]
     Active Substance: TRAMADOL
     Indication: WRIST FRACTURE
     Route: 065
     Dates: start: 202012
  2. RINVOQ [Suspect]
     Active Substance: UPADACITINIB
     Indication: RHEUMATOID ARTHRITIS
     Route: 048
     Dates: start: 20201204, end: 20201220
  3. RINVOQ [Suspect]
     Active Substance: UPADACITINIB
     Route: 048

REACTIONS (8)
  - Wrist fracture [Recovering/Resolving]
  - Joint swelling [Not Recovered/Not Resolved]
  - Fall [Unknown]
  - Contusion [Unknown]
  - Wrist deformity [Unknown]
  - Impaired healing [Unknown]
  - Pain [Not Recovered/Not Resolved]
  - Malaise [Unknown]

NARRATIVE: CASE EVENT DATE: 202012
